FAERS Safety Report 11812352 (Version 2)
Quarter: 2015Q4

REPORT INFORMATION
  Report Type: Report from Study
  Country: US (occurrence: US)
  Receive Date: 20151208
  Receipt Date: 20151229
  Transmission Date: 20160305
  Serious: Yes (Hospitalization, Other)
  Sender: FDA-Public Use
  Company Number: US-GILEAD-2015-0185606

PATIENT
  Age: 54 Year
  Sex: Female

DRUGS (2)
  1. LEDIPASVIR/SOFOSBUVIR [Suspect]
     Active Substance: LEDIPASVIR\SOFOSBUVIR
     Indication: CHRONIC HEPATITIS C
     Dosage: 1 DF, UNK
     Route: 048
     Dates: start: 20150909
  2. XANAX [Concomitant]
     Active Substance: ALPRAZOLAM
     Indication: SEIZURE
     Dosage: 2 MG, UNK
     Route: 065

REACTIONS (3)
  - Seizure [Unknown]
  - Asthma [Unknown]
  - Anxiety [Unknown]

NARRATIVE: CASE EVENT DATE: 201511
